FAERS Safety Report 8588113 (Version 2)
Quarter: 2012Q4

REPORT INFORMATION
  Report Type: 
  Country: US (occurrence: US)
  Receive Date: 20120531
  Receipt Date: 20121005
  Transmission Date: 20130627
  Serious: Yes (Hospitalization)
  Sender: FDA-Public Use
  Company Number: US-BAYER-2012-053246

PATIENT
  Age: 39 Year
  Sex: Female
  Weight: 68.03 kg

DRUGS (12)
  1. YASMIN [Suspect]
     Indication: MENSTRUATION IRREGULAR
     Dosage: UNK
     Dates: start: 200503, end: 200905
  2. OCELLA [Suspect]
     Indication: MENSTRUATION IRREGULAR
     Dosage: UNK
     Dates: start: 200503, end: 200905
  3. PROBIOTICS [Concomitant]
     Dosage: UNK; daily
  4. MULTIVITAMINS [Concomitant]
  5. CLARINEX [DESLORATADINE] [Concomitant]
     Indication: MULTIPLE ALLERGIES
     Dosage: 1 mg, daily
     Route: 048
     Dates: start: 2007
  6. FLONASE [Concomitant]
     Indication: MULTIPLE ALLERGIES
     Dosage: 1 spray both nares; daily
     Route: 045
     Dates: start: 2007
  7. CENTRUM [Concomitant]
     Dosage: 1 Daily
     Route: 048
     Dates: start: 20090424, end: 20090501
  8. CALCIUM W/MAGNESIUM [Concomitant]
     Dosage: UNK;1 Daily
     Route: 048
     Dates: start: 20090501
  9. VITAMIN D [Concomitant]
     Dosage: UNK; 1 Daily
  10. FISH OIL [Concomitant]
     Dosage: UNk; 1 daily
     Route: 048
     Dates: start: 20090501
  11. HERBAL PREPARATION [Concomitant]
     Dosage: UNK;1 daily
     Route: 048
     Dates: start: 20090501
  12. ASPIRIN [Concomitant]
     Dosage: 81 mg, daily
     Route: 048
     Dates: start: 20090501

REACTIONS (10)
  - Gallbladder injury [None]
  - Injury [None]
  - Pain [None]
  - General physical health deterioration [None]
  - Emotional distress [None]
  - Anxiety [None]
  - Pain [None]
  - Scar [None]
  - Cholecystitis chronic [None]
  - Bile duct stone [None]
